FAERS Safety Report 6453683-9 (Version None)
Quarter: 2009Q4

REPORT INFORMATION
  Report Type: 
  Country: None (occurrence: None)
  Receive Date: 20091124
  Receipt Date: 20091119
  Transmission Date: 20100525
  Serious: Yes (Death, Other)
  Sender: FDA-Public Use
  Company Number: PHHY2008CA00660

PATIENT
  Sex: Female

DRUGS (2)
  1. ZOMETA [Suspect]
     Indication: BREAST CANCER
     Dosage: 4 MG, EVERY 6 WEEKS
     Route: 042
     Dates: start: 20061206
  2. ANTINEOPLASTIC AND IMMUNOMODULATING AGENTS [Concomitant]

REACTIONS (2)
  - BONE DISORDER [None]
  - DEATH [None]
